FAERS Safety Report 5063047-0 (Version None)
Quarter: 2006Q3

REPORT INFORMATION
  Report Type: 
  Country: None (occurrence: None)
  Receive Date: 20060724
  Receipt Date: 20060714
  Transmission Date: 20061208
  Serious: Yes (Hospitalization)
  Sender: FDA-Public Use
  Company Number: 2006-01-0278

PATIENT
  Age: 69 Year
  Sex: Male
  Weight: 93 kg

DRUGS (7)
  1. TEMODAR [Suspect]
     Indication: OLIGODENDROGLIOMA
     Dosage: 160 MG QD ORAL
     Route: 048
     Dates: start: 20051214, end: 20060101
  2. RADIATION THERAPY NO DOSE FORM [Suspect]
     Indication: OLIGODENDROGLIOMA
     Dosage: 2160 GY TOTAL
     Dates: end: 20051230
  3. DECADRON [Suspect]
     Dosage: ORAL
     Route: 048
  4. LAMICTAL [Suspect]
  5. DEPAKOTE [Concomitant]
  6. KEPPRA [Concomitant]
  7. NEURONTIN [Concomitant]

REACTIONS (6)
  - ERYTHEMA MULTIFORME [None]
  - LUNG DISORDER [None]
  - NEOPLASM PROGRESSION [None]
  - NONSPECIFIC REACTION [None]
  - PNEUMONIA [None]
  - STEVENS-JOHNSON SYNDROME [None]
